FAERS Safety Report 7038820-X (Version None)
Quarter: 2010Q4

REPORT INFORMATION
  Report Type: 
  Country: None (occurrence: None)
  Receive Date: 20101012
  Receipt Date: 20101004
  Transmission Date: 20110411
  Serious: No
  Sender: FDA-Public Use
  Company Number: US-BIOGENIDEC-2010BI034796

PATIENT
  Sex: Female

DRUGS (2)
  1. TYSABRI [Suspect]
     Indication: MULTIPLE SCLEROSIS
     Route: 042
     Dates: start: 20070630, end: 20070922
  2. TYSABRI [Suspect]
     Route: 042
     Dates: start: 20080317

REACTIONS (3)
  - FATIGUE [None]
  - INTERVERTEBRAL DISC PROTRUSION [None]
  - MUSCLE TIGHTNESS [None]
